FAERS Safety Report 25474037 (Version 1)
Quarter: 2025Q2

REPORT INFORMATION
  Report Type: Spontaneous
  Country: US (occurrence: None)
  Receive Date: 20250619
  Receipt Date: 20250619
  Transmission Date: 20250717
  Serious: No
  Sender: FDA-CTU
  Company Number: None

PATIENT
  Sex: Female

DRUGS (1)
  1. STEM CELL EXOSOME GROWTH FACTOR DERIVED OTC PRODUCTS [Suspect]
     Active Substance: STEM CELL EXOSOME GROWTH FACTOR DERIVED OTC PRODUCTS

REACTIONS (5)
  - Product communication issue [None]
  - Medical device site pain [None]
  - Wrong technique in device usage process [None]
  - Hypersensitivity [None]
  - Device safety feature issue [None]

NARRATIVE: CASE EVENT DATE: 20250505
